FAERS Safety Report 19798451 (Version 1)
Quarter: 2021Q3

REPORT INFORMATION
  Report Type: Spontaneous
  Country: KR (occurrence: KR)
  Receive Date: 20210906
  Receipt Date: 20210906
  Transmission Date: 20211014
  Serious: Yes (Other)
  Sender: FDA-Public Use
  Company Number: KR-ELI_LILLY_AND_COMPANY-KR202108012609

PATIENT
  Sex: Female

DRUGS (1)
  1. TERIPARATIDE 250UG/ML [Suspect]
     Active Substance: TERIPARATIDE
     Indication: OSTEOPOROSIS
     Dosage: 20 MG, DAILY
     Route: 058
     Dates: start: 2018

REACTIONS (8)
  - Accidental underdose [Unknown]
  - Injection site pain [Unknown]
  - Nausea [Recovered/Resolved]
  - Injection site bruising [Unknown]
  - Arthralgia [Unknown]
  - Joint injury [Unknown]
  - Constipation [Not Recovered/Not Resolved]
  - Injection site haemorrhage [Unknown]
